FAERS Safety Report 10956792 (Version 1)
Quarter: 2015Q1

REPORT INFORMATION
  Report Type: Spontaneous
  Country: US (occurrence: US)
  Receive Date: 20150326
  Receipt Date: 20150326
  Transmission Date: 20150721
  Serious: No
  Sender: FDA-Public Use
  Company Number: US-MYLANLABS-2015M1000578

PATIENT
  Sex: Female
  Weight: 45.35 kg

DRUGS (1)
  1. EMSAM [Suspect]
     Active Substance: SELEGILINE
     Indication: DEPRESSION
     Dosage: 9 MG, Q,D, CHANGE Q D
     Route: 062
     Dates: start: 201311

REACTIONS (1)
  - Insomnia [Not Recovered/Not Resolved]
